FAERS Safety Report 5396841-7 (Version None)
Quarter: 2007Q3

REPORT INFORMATION
  Report Type: 
  Country: None (occurrence: None)
  Receive Date: 20070725
  Receipt Date: 20060801
  Transmission Date: 20080115
  Serious: No
  Sender: FDA-Public Use
  Company Number: US-AMGEN-KDL190274

PATIENT
  Sex: Male

DRUGS (4)
  1. PROCRIT [Suspect]
     Indication: RENAL FAILURE CHRONIC
     Route: 058
     Dates: start: 19990301
  2. FLOMAX [Concomitant]
  3. LEVOXYL [Concomitant]
  4. ASPIRIN [Concomitant]

REACTIONS (1)
  - HAEMOGLOBIN DECREASED [None]
